FAERS Safety Report 5050783-5 (Version None)
Quarter: 2006Q3

REPORT INFORMATION
  Report Type: 
  Country: None (occurrence: None)
  Receive Date: 20060707
  Receipt Date: 20060629
  Transmission Date: 20061208
  Serious: Yes (Hospitalization, Other)
  Sender: FDA-Public Use
  Company Number: FRWYE881229JUN06

PATIENT
  Age: 49 Year
  Sex: Female

DRUGS (5)
  1. SIROLIMUS (SIROLIMUS, SOLUTION) [Suspect]
     Indication: RENAL TRANSPLANT
     Dosage: 5 MG 1X PER 1 DAY; 15 MG 1X PER 1 DAY
     Route: 048
     Dates: start: 20020830, end: 20020830
  2. SIROLIMUS (SIROLIMUS, SOLUTION) [Suspect]
     Indication: RENAL TRANSPLANT
     Dosage: 5 MG 1X PER 1 DAY; 15 MG 1X PER 1 DAY
     Route: 048
     Dates: start: 20020831
  3. SOLU-MEDROL [Concomitant]
  4. THYMOGLOBULIN [Concomitant]
  5. MYCOPHENOLATE MOFETIL [Concomitant]

REACTIONS (2)
  - DIALYSIS [None]
  - RENAL FAILURE ACUTE [None]
